FAERS Safety Report 4851677-8 (Version None)
Quarter: 2005Q4

REPORT INFORMATION
  Report Type: 
  Country: None (occurrence: None)
  Receive Date: 20051209
  Receipt Date: 20051209
  Transmission Date: 20060501
  Serious: Yes (Other)
  Sender: FDA-Public Use
  Company Number: None

PATIENT
  Age: 19 Year
  Sex: Female
  Weight: 49.8957 kg

DRUGS (1)
  1. CAFFEINE STRYCHNINE [Suspect]
     Indication: DIZZINESS
     Dosage: 20 DROPS PO
     Route: 048
     Dates: start: 20050421, end: 20050422

REACTIONS (8)
  - AGITATION [None]
  - EYE MOVEMENT DISORDER [None]
  - HEADACHE [None]
  - INTENTIONAL DRUG MISUSE [None]
  - LOSS OF CONSCIOUSNESS [None]
  - MEMORY IMPAIRMENT [None]
  - TREMOR [None]
  - VISION BLURRED [None]
